FAERS Safety Report 8250690-0 (Version None)
Quarter: 2012Q2

REPORT INFORMATION
  Report Type: 
  Country: None (occurrence: None)
  Receive Date: 20120402
  Receipt Date: 20120327
  Transmission Date: 20120825
  Serious: Yes (Hospitalization)
  Sender: FDA-Public Use
  Company Number: US-PFIZER INC-2012067192

PATIENT
  Sex: Female
  Weight: 61.224 kg

DRUGS (18)
  1. ASCORBIC ACID [Concomitant]
     Dosage: 500 MG, 2X/DAY
     Route: 048
  2. ONDANSETRON HYDROCHLORIDE [Concomitant]
     Dosage: UNK
     Dates: start: 20120119
  3. THERAGRAN-M [Concomitant]
     Dosage: 1 DF, 1X/DAY
     Route: 048
  4. BYSTOLIC [Concomitant]
     Dosage: 5 MG, DAILY
     Route: 048
  5. ZOFRAN [Concomitant]
     Indication: NAUSEA
     Dosage: 4 MG, Q.4-6 H. P.R.N
     Route: 048
  6. LIPITOR [Concomitant]
     Dosage: 1 (40 MG) AT BADTIME
     Route: 048
     Dates: end: 20120306
  7. DRISDOL [Concomitant]
     Dosage: 1 (50000 UNITS) Q 4 WEEKS
     Route: 048
  8. CARAFATE [Concomitant]
     Dosage: 1 MG, BEFORE MEALS AND AT BEDTIME
  9. COUMADIN [Suspect]
     Dosage: 6 MG, ON MONDAYS AND THURSDAYS
  10. LOZOL [Concomitant]
     Dosage: 2.5 MG, DAILY
     Route: 048
  11. PROCHLORPERAZINE MALEATE [Concomitant]
     Dosage: 10 MG, AS NEEDED
     Dates: start: 20120119
  12. SUTENT [Suspect]
     Indication: METASTATIC RENAL CELL CARCINOMA
     Dosage: 50 MG, UNK
     Route: 048
     Dates: start: 20111228, end: 20120304
  13. COUMADIN [Suspect]
     Dosage: 4 MG, EXCEPT MONDAYS AND THURSDAYS
  14. POTASSIUM [Concomitant]
     Dosage: 10 MEQ, DAILY
     Route: 048
  15. TRAMADOL [Concomitant]
     Indication: PAIN
     Dosage: 50 MG, Q.4H. P.R.N
     Route: 048
     Dates: start: 20120103
  16. ULTRAM [Concomitant]
     Dosage: 1 (50 MG) DAILY
     Route: 048
  17. PROTON PUMP INHIBITORS [Concomitant]
     Dosage: 40 MG, DAILY
     Route: 048
  18. MAGNESIUM OXIDE [Concomitant]
     Dosage: 400 MG, DAILY
     Route: 048

REACTIONS (8)
  - HAEMATOMA [None]
  - DECREASED APPETITE [None]
  - DRUG INTOLERANCE [None]
  - NAUSEA [None]
  - VOMITING [None]
  - DEHYDRATION [None]
  - ASTHENIA [None]
  - DYSPHAGIA [None]
